FAERS Safety Report 11462105 (Version 1)
Quarter: 2015Q3

REPORT INFORMATION
  Report Type: Spontaneous
  Country: US (occurrence: US)
  Receive Date: 20150831
  Receipt Date: 20150831
  Transmission Date: 20151125
  Serious: No
  Sender: FDA-Public Use
  Company Number: US-ELI_LILLY_AND_COMPANY-US201010000191

PATIENT
  Age: 47 Year
  Sex: Female

DRUGS (1)
  1. CYMBALTA [Suspect]
     Active Substance: DULOXETINE HYDROCHLORIDE
     Indication: BIPOLAR DISORDER
     Dosage: 60 MG, DAILY (1/D)

REACTIONS (10)
  - Mood swings [Unknown]
  - Irritability [Unknown]
  - Expired product administered [Unknown]
  - Hyperhidrosis [Unknown]
  - Crying [Unknown]
  - Nausea [Unknown]
  - Cold sweat [Unknown]
  - Migraine [Unknown]
  - Off label use [Unknown]
  - Drug dispensing error [Recovered/Resolved]
